FAERS Safety Report 6194063-3 (Version None)
Quarter: 2009Q2

REPORT INFORMATION
  Report Type: 
  Country: None (occurrence: None)
  Receive Date: 20090518
  Receipt Date: 20090508
  Transmission Date: 20091009
  Serious: Yes (Other)
  Sender: FDA-Public Use
  Company Number: CH-GILEAD-2009-0021606

PATIENT
  Sex: Female

DRUGS (5)
  1. VIREAD [Suspect]
     Indication: DRUG USE FOR UNKNOWN INDICATION
  2. EMTRICITABINE [Suspect]
     Indication: DRUG USE FOR UNKNOWN INDICATION
  3. LOPINAVIR [Suspect]
  4. CALCIMAGON D3 [Concomitant]
     Indication: OSTEOPENIA
     Route: 048
     Dates: start: 20071101
  5. ROACCUTAN [Concomitant]
     Indication: ACNE
     Route: 048

REACTIONS (1)
  - OSTEOPOROSIS [None]
